FAERS Safety Report 8016978-3 (Version None)
Quarter: 2012Q1

REPORT INFORMATION
  Report Type: 
  Country: None (occurrence: None)
  Receive Date: 20120102
  Receipt Date: 20111227
  Transmission Date: 20120608
  Serious: Yes (Death)
  Sender: FDA-Public Use
  Company Number: PHHY2011CL101841

PATIENT
  Sex: Female
  Weight: 81 kg

DRUGS (5)
  1. THIOGUANINE [Concomitant]
     Dosage: 100 MG, DAILY
     Route: 048
     Dates: start: 20110620
  2. METHOTREXATE [Concomitant]
     Dosage: 40 MG, QW
     Route: 048
     Dates: start: 20110620
  3. ALLOPURINOL [Concomitant]
     Indication: PROPHYLAXIS
     Dosage: 100 MG, DAILY
     Dates: start: 20110620
  4. ESOMEPRAZOLE SODIUM [Concomitant]
     Dosage: 20 MG, DAILY
     Dates: start: 20110620
  5. GLEEVEC [Suspect]
     Indication: CHRONIC MYELOID LEUKAEMIA
     Dosage: 600 MG, UNK
     Dates: start: 20101007, end: 20110915

REACTIONS (2)
  - NO THERAPEUTIC RESPONSE [None]
  - DEATH [None]
